FAERS Safety Report 25189696 (Version 3)
Quarter: 2025Q2

REPORT INFORMATION
  Report Type: Spontaneous
  Country: US (occurrence: US)
  Receive Date: 20250411
  Receipt Date: 20250616
  Transmission Date: 20250716
  Serious: Yes (Hospitalization)
  Sender: VIIV
  Company Number: US-VIIV HEALTHCARE-US2025040339

PATIENT
  Sex: Male

DRUGS (4)
  1. DOVATO [Suspect]
     Active Substance: DOLUTEGRAVIR SODIUM\LAMIVUDINE
     Indication: HIV infection
  2. TRIUMEQ [Suspect]
     Active Substance: ABACAVIR SULFATE\DOLUTEGRAVIR SODIUM\LAMIVUDINE
     Indication: HIV infection
  3. ODEFSEY [Concomitant]
     Active Substance: EMTRICITABINE\RILPIVIRINE HYDROCHLORIDE\TENOFOVIR ALAFENAMIDE FUMARATE
     Indication: HIV infection
  4. WELLBUTRIN [Concomitant]
     Active Substance: BUPROPION HYDROCHLORIDE
     Indication: Depression

REACTIONS (10)
  - Upper respiratory tract infection [Recovering/Resolving]
  - Inflammation [Not Recovered/Not Resolved]
  - Nausea [Recovered/Resolved]
  - Swelling [Recovering/Resolving]
  - Gastrointestinal disorder [Unknown]
  - Constipation [Not Recovered/Not Resolved]
  - Abdominal distension [Unknown]
  - Bowel movement irregularity [Unknown]
  - Tooth disorder [Unknown]
  - Illness [Unknown]
